FAERS Safety Report 7619298-1 (Version None)
Quarter: 2011Q3

REPORT INFORMATION
  Report Type: 
  Country: None (occurrence: None)
  Receive Date: 20110718
  Receipt Date: 20110711
  Transmission Date: 20111222
  Serious: No
  Sender: FDA-Public Use
  Company Number: US-B.I. PHARMACEUTICALS,INC./RIDGEFIELD-2011-BP-15380BP

PATIENT
  Age: 83 Year
  Sex: Male
  Weight: 83.46 kg

DRUGS (10)
  1. ASPIRIN [Concomitant]
     Dosage: 81 MG
  2. WELCHOL [Concomitant]
     Dosage: 625 MG
  3. DOXAZOSIN MESYLATE [Concomitant]
  4. TEKTURNA [Concomitant]
     Dosage: 300 MG
  5. PRADAXA [Suspect]
     Indication: ATRIAL FIBRILLATION
     Dosage: 300 MG
     Route: 048
     Dates: start: 20110601
  6. METOPROLOL TARTRATE [Concomitant]
     Dosage: 300 MG
  7. DIGOXIN [Concomitant]
     Dosage: 0.25 MG
  8. CHOLESTYRAMINE [Concomitant]
     Dosage: 8 G
  9. LIPITOR [Concomitant]
     Dosage: 20 MG
  10. AZOR [Concomitant]

REACTIONS (2)
  - PAIN IN EXTREMITY [None]
  - ARTHRALGIA [None]
